FAERS Safety Report 7651683-4 (Version None)
Quarter: 2011Q3

REPORT INFORMATION
  Report Type: 
  Country: None (occurrence: None)
  Receive Date: 20110802
  Receipt Date: 20101103
  Transmission Date: 20111222
  Serious: Yes (Other)
  Sender: FDA-Public Use
  Company Number: PHHY2010AU74942

PATIENT
  Age: 55 Year
  Sex: Female

DRUGS (1)
  1. FEMARA [Suspect]
     Indication: BREAST CANCER
     Dosage: 2.5 MG, UNK
     Route: 048

REACTIONS (4)
  - CARPAL TUNNEL SYNDROME [None]
  - ARTHRITIS [None]
  - PAIN IN EXTREMITY [None]
  - GAIT DISTURBANCE [None]
